FAERS Safety Report 18261523 (Version 1)
Quarter: 2020Q3

REPORT INFORMATION
  Report Type: Spontaneous
  Country: US (occurrence: US)
  Receive Date: 20200913
  Receipt Date: 20200913
  Transmission Date: 20201103
  Serious: Yes (Life-Threatening)
  Sender: FDA-Public Use
  Company Number: None

PATIENT
  Age: 80 Year
  Sex: Male
  Weight: 81 kg

DRUGS (20)
  1. SODIUM BICARBONATE 150 MEQ CIV [Concomitant]
     Dates: start: 20200911
  2. ATIVAN 2 MG PER TUBE Q6H [Concomitant]
     Dates: start: 20200911, end: 20200912
  3. ZOSYN 4.5G IV ONCE [Concomitant]
     Dates: start: 20200911, end: 20200911
  4. ETOMIDATE 15 MG IV ONCE [Concomitant]
     Dates: start: 20200911, end: 20200911
  5. CEFTRIAXONE 1G IV DAILY [Concomitant]
     Dates: start: 20200911
  6. DEXAMETHASONE 6 MG IV DAILY [Concomitant]
     Dates: start: 20200911
  7. MIDAZOLAM CIV [Concomitant]
     Dates: start: 20200911
  8. VASOPRESSIN 0.4 UNITS/MIN CIV [Concomitant]
     Dates: start: 20200911, end: 20200912
  9. FENTANYL CIV [Concomitant]
     Dates: start: 20200911
  10. ROCURONIUM 100 MG IV ONCE [Concomitant]
     Dates: start: 20200911, end: 20200911
  11. HEPARIN CIV [Concomitant]
     Dates: start: 20200912
  12. FENTANYL 100 MCG IV ONCE [Concomitant]
     Dates: start: 20200911, end: 20200911
  13. AZITHROMYCIN 500 MG IV DAILY [Concomitant]
     Dates: start: 20200912
  14. ENOXAPARIN 40 MG SUBQ [Concomitant]
     Dates: start: 20200912, end: 20200912
  15. VANCOMYCIN 1750 MG IV ONCE [Concomitant]
     Dates: start: 20200911, end: 20200911
  16. MIDAZOLAM 3 MG IV ONCE [Concomitant]
     Dates: start: 20200911, end: 20200911
  17. REMDESIVIR. [Suspect]
     Active Substance: REMDESIVIR
     Indication: COVID-19
     Dosage: ?          OTHER FREQUENCY:ONCE;?
     Route: 040
     Dates: start: 20200912
  18. CHLOROHEXIDINE GLUCONATE PO [Concomitant]
     Dates: start: 20200911
  19. MUPIROCIN 2% NASAL APP [Concomitant]
     Dates: start: 20200911
  20. OXYCODONE 10 MG PER TUBE Q6H [Concomitant]
     Dates: start: 20200911, end: 20200912

REACTIONS (1)
  - Generalised tonic-clonic seizure [None]

NARRATIVE: CASE EVENT DATE: 20200912
